FAERS Safety Report 15434232 (Version 2)
Quarter: 2018Q4

REPORT INFORMATION
  Report Type: Report from Study
  Country: AU (occurrence: AU)
  Receive Date: 20180927
  Receipt Date: 20181213
  Transmission Date: 20190204
  Serious: Yes (Hospitalization)
  Sender: FDA-Public Use
  Company Number: AU-EISAI MEDICAL RESEARCH-EC-2018-045512

PATIENT
  Age: 67 Year
  Sex: Male
  Weight: 114.3 kg

DRUGS (14)
  1. EVEROLIMUS. [Suspect]
     Active Substance: EVEROLIMUS
     Indication: METASTATIC RENAL CELL CARCINOMA
     Route: 048
     Dates: start: 20180725, end: 20180921
  2. VENTOLIN [Concomitant]
     Active Substance: ALBUTEROL SULFATE
  3. TAMSUSOLIN [Concomitant]
  4. AUGMENTIN DUO FORTE [Concomitant]
     Active Substance: AMOXICILLIN\CLAVULANATE POTASSIUM
  5. CRESTOR [Concomitant]
     Active Substance: ROSUVASTATIN CALCIUM
  6. NUROFEN PLUS [Concomitant]
     Active Substance: CODEINE PHOSPHATE\IBUPROFEN
  7. VITAMIN C [Concomitant]
     Active Substance: ASCORBIC ACID
  8. LENVATINIB [Suspect]
     Active Substance: LENVATINIB
     Indication: METASTATIC RENAL CELL CARCINOMA
     Route: 048
     Dates: start: 20180725, end: 20180921
  9. NEOTIGASON [Concomitant]
     Active Substance: ACITRETIN
  10. NYACIN [Concomitant]
  11. PERINDOPRIL [Concomitant]
     Active Substance: PERINDOPRIL
  12. TARGIN [Concomitant]
     Active Substance: NALOXONE HYDROCHLORIDE\OXYCODONE HYDROCHLORIDE
  13. ENDONE [Concomitant]
     Active Substance: OXYCODONE HYDROCHLORIDE
  14. THYROXINE [Concomitant]
     Active Substance: LEVOTHYROXINE

REACTIONS (1)
  - Diverticular perforation [Recovered/Resolved]

NARRATIVE: CASE EVENT DATE: 20180921
